FAERS Safety Report 18523411 (Version 10)
Quarter: 2021Q2

REPORT INFORMATION
  Report Type: Spontaneous
  Country: US (occurrence: US)
  Receive Date: 20201119
  Receipt Date: 20210519
  Transmission Date: 20210717
  Serious: No
  Sender: FDA-Public Use
  Company Number: US-PFIZER INC-2020450883

PATIENT
  Age: 56 Year
  Sex: Female
  Weight: 56.7 kg

DRUGS (2)
  1. XELJANZ XR [Suspect]
     Active Substance: TOFACITINIB CITRATE
     Indication: PSORIATIC ARTHROPATHY
     Dosage: 11 MG, DAILY
     Route: 048
  2. XELJANZ XR [Suspect]
     Active Substance: TOFACITINIB CITRATE
     Indication: DERMATITIS EXFOLIATIVE GENERALISED
     Dosage: 11 MG, DAILY
     Route: 048
     Dates: start: 202008, end: 2020

REACTIONS (15)
  - Fatigue [Unknown]
  - Illness [Unknown]
  - Weight increased [Unknown]
  - Psoriasis [Unknown]
  - Sensitivity to weather change [Unknown]
  - Nervousness [Unknown]
  - Product dose omission issue [Unknown]
  - Musculoskeletal stiffness [Unknown]
  - Pain [Unknown]
  - Pain in extremity [Unknown]
  - Condition aggravated [Unknown]
  - Condition aggravated [Unknown]
  - Peripheral swelling [Unknown]
  - Arthritis [Unknown]
  - Malaise [Unknown]

NARRATIVE: CASE EVENT DATE: 2020
